FAERS Safety Report 8350008-9 (Version None)
Quarter: 2012Q2

REPORT INFORMATION
  Report Type: 
  Country: None (occurrence: None)
  Receive Date: 20120510
  Receipt Date: 20120430
  Transmission Date: 20120825
  Serious: Yes (Hospitalization, Other)
  Sender: FDA-Public Use
  Company Number: MW-ABBOTT-12P-100-0930524-00

PATIENT
  Sex: Female

DRUGS (3)
  1. LAMIVUDINE + ZIDOVUDINE [Concomitant]
     Indication: HIV INFECTION
     Dosage: 300/150MG
     Route: 048
     Dates: start: 20110902
  2. LOPINAVIR/RITONAVIR [Suspect]
     Indication: HIV INFECTION
     Dosage: 200/50MG
     Route: 048
     Dates: start: 20120123, end: 20120228
  3. EFAVIRENZ [Concomitant]
     Indication: HIV INFECTION
     Route: 048
     Dates: start: 20110902, end: 20120122

REACTIONS (1)
  - ABORTION SPONTANEOUS [None]
